FAERS Safety Report 15901242 (Version 1)
Quarter: 2019Q1

REPORT INFORMATION
  Report Type: Spontaneous
  Country: JP (occurrence: JP)
  Receive Date: 20190201
  Receipt Date: 20190201
  Transmission Date: 20190417
  Serious: Yes (Hospitalization, Other)
  Sender: FDA-Public Use
  Company Number: JP-OTSUKA-JP-2011-11191

PATIENT
  Age: 44 Year
  Sex: Female

DRUGS (2)
  1. ABILIFY [Suspect]
     Active Substance: ARIPIPRAZOLE
     Indication: SCHIZOPHRENIA
     Dosage: UNK
     Route: 048
  2. PEROSPIRONE [Concomitant]
     Active Substance: PEROSPIRONE
     Route: 048

REACTIONS (6)
  - Dystonia [Recovered/Resolved]
  - Taciturnity [Recovered/Resolved]
  - Fatigue [Recovered/Resolved]
  - Delusion [Recovered/Resolved]
  - Hyperacusis [Recovered/Resolved]
  - Insomnia [Recovered/Resolved]
